FAERS Safety Report 17782548 (Version 1)
Quarter: 2020Q2

REPORT INFORMATION
  Report Type: Spontaneous
  Country: US (occurrence: US)
  Receive Date: 20200514
  Receipt Date: 20200514
  Transmission Date: 20200714
  Serious: No
  Sender: FDA-Public Use
  Company Number: US-GALDERMA-US2020017656

PATIENT
  Age: 16 Year
  Sex: Female

DRUGS (10)
  1. PRILOSEC [Concomitant]
     Active Substance: OMEPRAZOLE MAGNESIUM
     Indication: GASTROOESOPHAGEAL REFLUX DISEASE
  2. PROACTIV MD ADAPALENE ACNE TREATMENT [Suspect]
     Active Substance: ADAPALENE
     Indication: ACNE
     Dosage: 0.1%
     Route: 061
     Dates: start: 201911, end: 20200327
  3. PROACTIV MD DEEP CLEANSING FACE WASH [Concomitant]
     Active Substance: COSMETICS
     Indication: ACNE
     Route: 061
     Dates: start: 201911, end: 20200327
  4. PROACTIV GENTLE FORMULA CLARIFYING NIGHT LOTION [Concomitant]
     Indication: ACNE
     Route: 061
     Dates: start: 201911, end: 20200327
  5. CETIRIZINE [Concomitant]
     Active Substance: CETIRIZINE HYDROCHLORIDE
     Indication: ASTHMA
  6. PROACTIV GENTLE FORMULA CLARIFYING TONER [Concomitant]
     Indication: ACNE
     Route: 061
     Dates: start: 201911, end: 20200327
  7. PROAIR HFA [Concomitant]
     Active Substance: ALBUTEROL SULFATE
     Indication: ASTHMA
  8. PROACTIV MD DAILY OIL CONTROL SPF 30 [Suspect]
     Active Substance: AVOBENZONE\OCTISALATE\OCTOCRYLENE
     Indication: ACNE
     Route: 061
     Dates: start: 201911, end: 20200327
  9. PROACTIV GENTLE FORMULA CLARIFYING CLEANSER [Concomitant]
     Active Substance: SALICYLIC ACID
     Indication: ACNE
     Route: 061
     Dates: start: 201911, end: 20200327
  10. PROACTIV SOLUTION BLACKHEAD DISSOLVING [Concomitant]
     Active Substance: SALICYLIC ACID
     Indication: ACNE
     Route: 061
     Dates: start: 201911, end: 20200327

REACTIONS (4)
  - Skin irritation [Not Recovered/Not Resolved]
  - Dilated pores [Not Recovered/Not Resolved]
  - Acne [Not Recovered/Not Resolved]
  - Scar [Not Recovered/Not Resolved]

NARRATIVE: CASE EVENT DATE: 2019
